FAERS Safety Report 20232535 (Version 1)
Quarter: 2021Q4

REPORT INFORMATION
  Report Type: Spontaneous
  Country: PL (occurrence: None)
  Receive Date: 20211227
  Receipt Date: 20211227
  Transmission Date: 20220303
  Serious: Yes (Other)
  Sender: FDA-Public Use
  Company Number: PL-AMGEN-POLSP2021197829

PATIENT
  Age: 65 Year
  Sex: Female

DRUGS (5)
  1. IRINOTECAN [Suspect]
     Active Substance: IRINOTECAN
     Indication: Colon cancer metastatic
     Dosage: 180 MILLIGRAM/SQ. METER (DAY 1)
     Route: 042
     Dates: start: 20210831
  2. LEUCOVORIN [Suspect]
     Active Substance: LEUCOVORIN
     Indication: Colon cancer metastatic
     Dosage: UNK, Q2WK
     Route: 065
     Dates: start: 20210831
  3. FLUOROURACIL [Suspect]
     Active Substance: FLUOROURACIL
     Indication: Colon cancer metastatic
     Dosage: 400 MILLIGRAM/SQ. METER (IV BOLUS, DAYS 1-2)
     Route: 042
     Dates: start: 20210831
  4. FLUOROURACIL [Suspect]
     Active Substance: FLUOROURACIL
     Dosage: 600 MILLIGRAM/SQ. METER IV - 22-HOUR INFUSION, DAYS 1-2
     Route: 042
     Dates: start: 2021
  5. PANITUMUMAB [Suspect]
     Active Substance: PANITUMUMAB
     Indication: Colon cancer metastatic
     Dosage: 6 MILLIGRAM/KILOGRAM (DAY 1)
     Route: 042
     Dates: start: 20210831

REACTIONS (5)
  - Dry skin [Unknown]
  - Dermatitis acneiform [Unknown]
  - Depilation [Unknown]
  - Erythema [Unknown]
  - Asthenia [Unknown]

NARRATIVE: CASE EVENT DATE: 20210101
